FAERS Safety Report 5358442-6 (Version None)
Quarter: 2007Q2

REPORT INFORMATION
  Report Type: 
  Country: None (occurrence: None)
  Receive Date: 20070531
  Receipt Date: 20070418
  Transmission Date: 20071010
  Serious: No
  Sender: FDA-Public Use
  Company Number: 2007MP000193

PATIENT

DRUGS (1)
  1. DACOGEN [Suspect]
     Dosage: IV
     Route: 042

REACTIONS (1)
  - HAEMATOCHEZIA [None]
